FAERS Safety Report 26106749 (Version 1)
Quarter: 2025Q4

REPORT INFORMATION
  Report Type: Spontaneous
  Country: EU (occurrence: EU)
  Receive Date: 20251201
  Receipt Date: 20251201
  Transmission Date: 20260118
  Serious: Yes (Other)
  Sender: TEVA
  Company Number: None

PATIENT
  Age: 36 Year
  Sex: Female

DRUGS (2)
  1. AMOXICILLIN [Suspect]
     Active Substance: AMOXICILLIN
     Indication: Infection
     Dosage: TIME INTERVAL: TOTAL
     Route: 048
     Dates: start: 201412, end: 201412
  2. IBUPROFEN [Concomitant]
     Active Substance: IBUPROFEN
     Indication: Infection
     Dosage: TIME INTERVAL: TOTAL
     Route: 048
     Dates: start: 201412, end: 201412

REACTIONS (1)
  - Anaphylactic shock [Recovered/Resolved]

NARRATIVE: CASE EVENT DATE: 20141201
